FAERS Safety Report 4395983-2 (Version None)
Quarter: 2004Q3

REPORT INFORMATION
  Report Type: 
  Country: None (occurrence: None)
  Receive Date: 20040707
  Receipt Date: 20040623
  Transmission Date: 20050211
  Serious: Yes (Hospitalization)
  Sender: FDA-Public Use
  Company Number: 04P-087-0264921-00

PATIENT
  Age: 75 Year
  Sex: Female

DRUGS (3)
  1. BIAXIN [Suspect]
     Indication: NASOPHARYNGITIS
     Dosage: 400 MG, 1 IN 1 D, PER ORAL
     Route: 048
     Dates: start: 20031218, end: 20031223
  2. DISOPYRAMIDE [Suspect]
     Indication: ATRIAL FIBRILLATION
     Dosage: 100 MG, 1 IN 1 D, PER ORAL
     Route: 048
  3. DIGITOXIN TAB [Concomitant]

REACTIONS (5)
  - DRUG INTERACTION [None]
  - HAEMODIALYSIS [None]
  - HYPOGLYCAEMIA [None]
  - TORSADE DE POINTES [None]
  - VENTRICULAR TACHYCARDIA [None]
